FAERS Safety Report 13243637 (Version 1)
Quarter: 2017Q1

REPORT INFORMATION
  Report Type: Spontaneous
  Country: US (occurrence: US)
  Receive Date: 20170216
  Receipt Date: 20170216
  Transmission Date: 20170428
  Serious: No
  Sender: FDA-Public Use
  Company Number: US-ACTELION-A-NJ2017-150014

PATIENT
  Age: 32 Year
  Sex: Female
  Weight: 47.62 kg

DRUGS (1)
  1. VELETRI [Suspect]
     Active Substance: EPOPROSTENOL
     Indication: PULMONARY ARTERIAL HYPERTENSION
     Dosage: 69 NG/KG, PER MIN
     Route: 042

REACTIONS (3)
  - Heart rate increased [Unknown]
  - Seasonal allergy [Unknown]
  - Insomnia [Unknown]

NARRATIVE: CASE EVENT DATE: 20170211
